FAERS Safety Report 4313046-9 (Version None)
Quarter: 2004Q1

REPORT INFORMATION
  Report Type: 
  Country: None (occurrence: None)
  Receive Date: 20040304
  Receipt Date: 20040223
  Transmission Date: 20041129
  Serious: Yes (Death, Hospitalization)
  Sender: FDA-Public Use
  Company Number: 2003_000091

PATIENT
  Age: 45 Year
  Sex: Male
  Weight: 72.5755 kg

DRUGS (6)
  1. DEPOCYT [Suspect]
     Indication: CENTRAL NERVOUS SYSTEM LYMPHOMA
     Dosage: 50 MG; EVERY OTHER WEEK; INTRATHECAL
     Route: 037
     Dates: start: 20031111, end: 20031201
  2. ZERIT [Concomitant]
  3. VIDEX [Concomitant]
  4. KELETRA [Concomitant]
  5. CORTICOSTEROIDS [Concomitant]
  6. CHOP [Concomitant]

REACTIONS (12)
  - ASTHENIA [None]
  - BONE MARROW DEPRESSION [None]
  - CENTRAL NERVOUS SYSTEM LYMPHOMA [None]
  - ERYTHEMA [None]
  - IMPLANT SITE INFECTION [None]
  - IMPLANT SITE REACTION [None]
  - LEUKOPENIA [None]
  - MALIGNANT NEOPLASM PROGRESSION [None]
  - MEDICAL DEVICE COMPLICATION [None]
  - METASTASIS [None]
  - MUSCULOSKELETAL STIFFNESS [None]
  - STAPHYLOCOCCAL INFECTION [None]
